FAERS Safety Report 5885679-X (Version None)
Quarter: 2008Q3

REPORT INFORMATION
  Report Type: 
  Country: None (occurrence: None)
  Receive Date: 20080912
  Receipt Date: 20080903
  Transmission Date: 20090109
  Serious: Yes (Other)
  Sender: FDA-Public Use
  Company Number: 2008-03009

PATIENT
  Age: 64 Year
  Sex: Female
  Weight: 57 kg

DRUGS (5)
  1. VELCADE [Suspect]
     Indication: MULTIPLE MYELOMA
     Dosage: 2 MG, INTRAVENOUS
     Route: 042
     Dates: start: 20080804, end: 20080811
  2. DEXAMETHASONE [Concomitant]
  3. DICLOFENAC SODIUM [Concomitant]
  4. TRAMADOL HCL [Concomitant]
  5. ACETAMINOPHEN [Concomitant]

REACTIONS (4)
  - ACTIVITIES OF DAILY LIVING IMPAIRED [None]
  - ASTHENIA [None]
  - FEELING ABNORMAL [None]
  - MUSCULOSKELETAL PAIN [None]
